FAERS Safety Report 8173803-8 (Version None)
Quarter: 2012Q1

REPORT INFORMATION
  Report Type: 
  Country: None (occurrence: None)
  Receive Date: 20120229
  Receipt Date: 20120216
  Transmission Date: 20120608
  Serious: Yes (Hospitalization, Other)
  Sender: FDA-Public Use
  Company Number: US-ELI_LILLY_AND_COMPANY-US201110003147

PATIENT
  Sex: Female
  Weight: 59.4 kg

DRUGS (4)
  1. FORTEO [Suspect]
     Dosage: 20 UG, QD
  2. LORAZEPAM [Concomitant]
     Dosage: 1 MG, UNKNOWN
  3. FORTEO [Suspect]
     Dosage: 20 UG, QD
     Route: 065
  4. FORTEO [Suspect]
     Indication: OSTEOPOROSIS
     Dosage: 20 UG, QD
     Route: 058

REACTIONS (14)
  - WRIST FRACTURE [None]
  - NERVOUS SYSTEM DISORDER [None]
  - DYSGRAPHIA [None]
  - CEREBROVASCULAR ACCIDENT [None]
  - FALL [None]
  - TREMOR [None]
  - FATIGUE [None]
  - PAIN [None]
  - GAIT DISTURBANCE [None]
  - ADVERSE EVENT [None]
  - ASTHENIA [None]
  - THORACIC VERTEBRAL FRACTURE [None]
  - THERAPEUTIC PROCEDURE [None]
  - HYPOAESTHESIA [None]
